FAERS Safety Report 20875754 (Version 1)
Quarter: 2022Q2

REPORT INFORMATION
  Report Type: Spontaneous
  Country: US (occurrence: US)
  Receive Date: 20220526
  Receipt Date: 20220526
  Transmission Date: 20220721
  Serious: No
  Sender: FDA-Public Use
  Company Number: US-ELI_LILLY_AND_COMPANY-US202205011205

PATIENT
  Age: 35 Year
  Sex: Female

DRUGS (2)
  1. HUMALOG [Interacting]
     Active Substance: INSULIN LISPRO
     Indication: Product used for unknown indication
     Dosage: UNK UNK, UNKNOWN
     Route: 065
     Dates: start: 20211115, end: 20211118
  2. ZULRESSO [Concomitant]
     Active Substance: BREXANOLONE
     Indication: Perinatal depression
     Dosage: INFUSION OF UNKNOWN DOSAGE

REACTIONS (3)
  - Fatigue [Unknown]
  - Somnolence [Unknown]
  - Drug interaction [Unknown]
